FAERS Safety Report 20484238 (Version 3)
Quarter: 2025Q2

REPORT INFORMATION
  Report Type: Spontaneous
  Country: CL (occurrence: CL)
  Receive Date: 20220217
  Receipt Date: 20250527
  Transmission Date: 20250716
  Serious: Yes (Life-Threatening, Other)
  Sender: ROCHE
  Company Number: CL-002147023-NVSC2022CL033079

PATIENT
  Age: 54 Year
  Sex: Female

DRUGS (2)
  1. OMALIZUMAB [Suspect]
     Active Substance: OMALIZUMAB
     Indication: Urticaria chronic
     Route: 065
     Dates: start: 2015
  2. OMALIZUMAB [Suspect]
     Active Substance: OMALIZUMAB
     Route: 065
     Dates: start: 202003

REACTIONS (8)
  - Platelet count abnormal [Unknown]
  - Urticaria chronic [Not Recovered/Not Resolved]
  - Immune thrombocytopenia [Recovered/Resolved]
  - Drug dependence [Unknown]
  - Ecchymosis [Unknown]
  - Immunology test normal [Unknown]
  - Selective IgA immunodeficiency [Unknown]
  - IgG deficiency [Unknown]

NARRATIVE: CASE EVENT DATE: 20200301
